FAERS Safety Report 20876872 (Version 1)
Quarter: 2022Q2

REPORT INFORMATION
  Report Type: Spontaneous
  Country: SV (occurrence: None)
  Receive Date: 20220526
  Receipt Date: 20220526
  Transmission Date: 20220721
  Serious: Yes (Death)
  Sender: FDA-Public Use
  Company Number: 2022A196063

PATIENT
  Sex: Female

DRUGS (3)
  1. NEXIUM I.V. [Suspect]
     Active Substance: ESOMEPRAZOLE SODIUM
     Indication: Gastrooesophageal reflux disease
     Route: 042
     Dates: start: 20220507, end: 20220507
  2. CEFTRIAXONE [Concomitant]
     Active Substance: CEFTRIAXONE
  3. AMIKACIN [Concomitant]
     Active Substance: AMIKACIN

REACTIONS (6)
  - Seizure [Fatal]
  - Vomiting [Fatal]
  - Respiratory depression [Fatal]
  - Laryngeal oedema [Fatal]
  - Cardiac arrest [Fatal]
  - Off label use [Unknown]
